FAERS Safety Report 4279516-7 (Version None)
Quarter: 2004Q1

REPORT INFORMATION
  Report Type: 
  Country: None (occurrence: None)
  Receive Date: 20040126
  Receipt Date: 20040126
  Transmission Date: 20041129
  Serious: Yes (Life-Threatening, Disabling)
  Sender: FDA-Public Use
  Company Number: None

PATIENT
  Age: 46 Year
  Sex: Male
  Weight: 90.7194 kg

DRUGS (2)
  1. FLOXIN [Suspect]
     Indication: BRONCHITIS
     Dosage: 1  ORAL
     Route: 048
     Dates: start: 20021220, end: 20030117
  2. FLOXIN [Suspect]
     Indication: PHARYNGITIS
     Dosage: 1  ORAL
     Route: 048
     Dates: start: 20021220, end: 20030117

REACTIONS (3)
  - DYSSTASIA [None]
  - PARALYSIS [None]
  - TENDONITIS [None]
